FAERS Safety Report 8024731-X (Version None)
Quarter: 2012Q1

REPORT INFORMATION
  Report Type: 
  Country: None (occurrence: None)
  Receive Date: 20120105
  Receipt Date: 20111223
  Transmission Date: 20120608
  Serious: Yes (Hospitalization)
  Sender: FDA-Public Use
  Company Number: US-ACTELION-A-NJ2011-57317

PATIENT

DRUGS (2)
  1. OXYGEN [Concomitant]
  2. TRACLEER [Suspect]
     Indication: PULMONARY ARTERIAL HYPERTENSION
     Dosage: UNK
     Route: 048
     Dates: start: 20090319

REACTIONS (5)
  - LOWER LIMB FRACTURE [None]
  - VIRAL INFECTION [None]
  - INTESTINAL HAEMORRHAGE [None]
  - PNEUMONIA [None]
  - NERVE INJURY [None]
